FAERS Safety Report 10179990 (Version 2)
Quarter: 2014Q2

REPORT INFORMATION
  Report Type: Spontaneous
  Country: US (occurrence: US)
  Receive Date: 20140519
  Receipt Date: 20140519
  Transmission Date: 20141212
  Serious: Yes (Other)
  Sender: FDA-Public Use
  Company Number: US-BRISTOL-MYERS SQUIBB COMPANY-19694181

PATIENT
  Age: 50 Year
  Sex: Female

DRUGS (2)
  1. BARACLUDE [Suspect]
     Indication: HEPATITIS B
  2. VIREAD [Concomitant]

REACTIONS (1)
  - Drug ineffective [Unknown]
